FAERS Safety Report 10688214 (Version 1)
Quarter: 2014Q4

REPORT INFORMATION
  Report Type: Spontaneous
  Country: US (occurrence: None)
  Receive Date: 20141231
  Receipt Date: 20141231
  Transmission Date: 20150529
  Serious: Yes (Other)
  Sender: FDA-Public Use
  Company Number: COT_00211_2014

PATIENT

DRUGS (4)
  1. GEMCITABINE [Suspect]
     Active Substance: GEMCITABINE\GEMCITABINE HYDROCHLORIDE
     Indication: NON-SMALL CELL LUNG CANCER STAGE III
     Dosage: 100 MG/M2, ON DAYS 1 AND 8, EVERY 21 DAYS FOR 4 CYCLES INTRAVENOUS (NOT OTHERWISE SPECIFIED)
     Route: 042
  2. CARBOPLATIN. [Suspect]
     Active Substance: CARBOPLATIN
     Indication: NON-SMALL CELL LUNG CANCER STAGE III
     Dosage: DAY 1 FOR 4 CYCLES INTRAVENOUS (NOT OTHERWISE SPECIFIED)
  3. TIME THORAIC RADIOTHERAPY [Concomitant]
  4. PACLITAXEL. [Concomitant]
     Active Substance: PACLITAXEL

REACTIONS (2)
  - Pulmonary embolism [None]
  - Toxicity to various agents [None]
